FAERS Safety Report 6323720-0 (Version None)
Quarter: 2009Q3

REPORT INFORMATION
  Report Type: 
  Country: None (occurrence: None)
  Receive Date: 20090824
  Receipt Date: 20090605
  Transmission Date: 20100115
  Serious: No
  Sender: FDA-Public Use
  Company Number: US-ABBOTT-09P-163-0578564-00

PATIENT
  Sex: Male
  Weight: 118.04 kg

DRUGS (3)
  1. NIASPAN [Suspect]
     Indication: LOW DENSITY LIPOPROTEIN INCREASED
     Route: 048
     Dates: start: 20040101, end: 20060101
  2. NIASPAN [Suspect]
     Route: 048
     Dates: start: 20080101, end: 20090527
  3. NIACIN [Concomitant]
     Indication: LOW DENSITY LIPOPROTEIN INCREASED
     Dates: start: 20060101, end: 20080101

REACTIONS (1)
  - FLUSHING [None]
